FAERS Safety Report 17061794 (Version 2)
Quarter: 2020Q1

REPORT INFORMATION
  Report Type: Report from Study
  Country: US (occurrence: US)
  Receive Date: 20191121
  Receipt Date: 20200218
  Transmission Date: 20200409
  Serious: Yes (Death, Hospitalization, Other)
  Sender: FDA-Public Use
  Company Number: US-ACTELION-A-US2019-196927

PATIENT
  Age: 85 Year
  Sex: Male
  Weight: 63.49 kg

DRUGS (10)
  1. ROCALTROL [Concomitant]
     Active Substance: CALCITRIOL
  2. INSULIN [Concomitant]
     Active Substance: INSULIN NOS
  3. DIGOXIN. [Concomitant]
     Active Substance: DIGOXIN
  4. LOVENOX [Concomitant]
     Active Substance: ENOXAPARIN SODIUM
  5. BUMEX [Concomitant]
     Active Substance: BUMETANIDE
  6. SYNTHROID [Concomitant]
     Active Substance: LEVOTHYROXINE SODIUM
  7. KCL [Concomitant]
     Active Substance: POTASSIUM CHLORIDE
  8. OPSUMIT [Suspect]
     Active Substance: MACITENTAN
     Indication: PULMONARY HYPERTENSION
     Dosage: 10 MG, QD
     Route: 048
     Dates: start: 201810, end: 20191022
  9. SILDENAFIL. [Suspect]
     Active Substance: SILDENAFIL
     Indication: PULMONARY ARTERIAL HYPERTENSION
     Dosage: 10 UNK, TID
     Route: 065
  10. HYTRIN [Concomitant]
     Active Substance: TERAZOSIN HYDROCHLORIDE

REACTIONS (22)
  - Dry throat [Not Recovered/Not Resolved]
  - Rhinorrhoea [Not Recovered/Not Resolved]
  - Abdominal distension [Not Recovered/Not Resolved]
  - Gastritis erosive [Unknown]
  - Loss of personal independence in daily activities [Unknown]
  - Atrial enlargement [Unknown]
  - Ascites [Unknown]
  - Dizziness [Unknown]
  - Breath sounds abnormal [Unknown]
  - Right ventricular failure [Unknown]
  - Disease progression [Unknown]
  - Dyspnoea [Unknown]
  - Right ventricular dilatation [Unknown]
  - Renal impairment [Unknown]
  - Hepatic failure [Unknown]
  - Mediastinal mass [Unknown]
  - Colon adenoma [Unknown]
  - Fatigue [Unknown]
  - Pleural effusion [Not Recovered/Not Resolved]
  - Intracranial aneurysm [Fatal]
  - Cerebrovascular accident [Fatal]
  - Right ventricular systolic pressure increased [Unknown]

NARRATIVE: CASE EVENT DATE: 201810
